FAERS Safety Report 8196658-4 (Version None)
Quarter: 2012Q1

REPORT INFORMATION
  Report Type: 
  Country: None (occurrence: None)
  Receive Date: 20120229
  Receipt Date: 20110110
  Transmission Date: 20120608
  Serious: Yes (Hospitalization)
  Sender: FDA-Public Use
  Company Number: 010612

PATIENT
  Sex: Male

DRUGS (13)
  1. SAMSCA [Suspect]
     Indication: HYPONATRAEMIA
     Dosage: ORAL
     Route: 048
  2. MULTIVITAMIN /00097801/ (ASCORBIC ACID, CALCIUM PANTOTHENATE, ERGOCALC [Concomitant]
  3. PHOS-NAK (POTASSIUM PHOSPHATE DIBASIC, POTASSIUM PHOSPHATE MONOBASIC, [Concomitant]
  4. CLOBETASOL (CLOBETASOL) [Concomitant]
  5. FUROSEMIDE (FUROSEMIDE) [Concomitant]
  6. NADOLOL [Concomitant]
  7. CAMPHOR (CAMPHOR) [Concomitant]
  8. THIAMINE HCL (THIAMIDE HYDROCHLORIDE) [Concomitant]
  9. CLINDAMYCIN HCL (CLINDAMYCIN HYDROCHLORIDE) [Concomitant]
  10. SULFAMETHOXAZOLE AND TRIMETHOPRIM [Concomitant]
  11. OMEPRAZOLE [Concomitant]
  12. SPIRONOLACTONE [Concomitant]
  13. OXYCODONE HCL [Concomitant]

REACTIONS (1)
  - PYREXIA [None]
